FAERS Safety Report 13776942 (Version 3)
Quarter: 2017Q4

REPORT INFORMATION
  Report Type: Report from Study
  Country: US (occurrence: US)
  Receive Date: 20170721
  Receipt Date: 20171010
  Transmission Date: 20180320
  Serious: Yes (Death, Hospitalization)
  Sender: FDA-Public Use
  Company Number: US-PFIZER INC-2017310371

PATIENT
  Age: 63 Year
  Sex: Male
  Weight: 78.5 kg

DRUGS (23)
  1. SPIRONOLACTONE. [Suspect]
     Active Substance: SPIRONOLACTONE
  2. LOVENOX [Concomitant]
     Active Substance: ENOXAPARIN SODIUM
  3. LEVEMIR [Concomitant]
     Active Substance: INSULIN DETEMIR
  4. LOSARTAN POTASSIUM. [Suspect]
     Active Substance: LOSARTAN POTASSIUM
  5. CLONIDINE. [Concomitant]
     Active Substance: CLONIDINE
  6. DIPHENOXYLATE HCL + ATROPINE SULFATE [Concomitant]
     Active Substance: ATROPINE SULFATE\DIPHENOXYLATE HYDROCHLORIDE
  7. ESOMEPRAZOLE MAGNESIUM. [Concomitant]
     Active Substance: ESOMEPRAZOLE MAGNESIUM
  8. AMLODIPINE [Concomitant]
     Active Substance: AMLODIPINE BESYLATE
  9. CYANOCOBALAMIN. [Concomitant]
     Active Substance: CYANOCOBALAMIN
  10. REGLAN [Concomitant]
     Active Substance: METOCLOPRAMIDE HYDROCHLORIDE
  11. FENTANYL CITRATE. [Suspect]
     Active Substance: FENTANYL CITRATE
  12. INVOKANA [Concomitant]
     Active Substance: CANAGLIFLOZIN
  13. TOPROL XL [Concomitant]
     Active Substance: METOPROLOL SUCCINATE
  14. BISMUTH SUBSALICYLATE. [Concomitant]
     Active Substance: BISMUTH SUBSALICYLATE
  15. MK-1775 [Suspect]
     Active Substance: INVESTIGATIONAL PRODUCT
     Dosage: 300 MG, DAILY CYCLIC FOR DAYS 1-5 AND 8-12
     Route: 048
     Dates: start: 20170509, end: 20170513
  16. MK-1775 [Suspect]
     Active Substance: INVESTIGATIONAL PRODUCT
     Dosage: 300 MG, QD FOR DAYS 1-5 AND 8-12
     Route: 048
     Dates: start: 20170418
  17. OXYCODONE [Suspect]
     Active Substance: OXYCODONE
  18. LOPERAMIDE [Concomitant]
     Active Substance: LOPERAMIDE
  19. ALPRAZOLAM. [Suspect]
     Active Substance: ALPRAZOLAM
  20. COMPAZINE /00013302/ [Concomitant]
     Active Substance: PROCHLORPERAZINE EDISYLATE
  21. PANCRELIPASE. [Concomitant]
     Active Substance: PANCRELIPASE
  22. DRONABINOL. [Concomitant]
     Active Substance: DRONABINOL
  23. ROBAMOL [Concomitant]

REACTIONS (7)
  - Decreased appetite [Not Recovered/Not Resolved]
  - Hyponatraemia [Not Recovered/Not Resolved]
  - Neoplasm progression [Unknown]
  - Fatigue [Not Recovered/Not Resolved]
  - Neoplasm progression [Fatal]
  - Blood creatinine increased [Not Recovered/Not Resolved]
  - Ascites [Unknown]

NARRATIVE: CASE EVENT DATE: 20170515
